FAERS Safety Report 10169309 (Version 1)
Quarter: 2014Q2

REPORT INFORMATION
  Report Type: Spontaneous
  Country: DE (occurrence: DE)
  Receive Date: 20140513
  Receipt Date: 20140513
  Transmission Date: 20141212
  Serious: Yes (Other)
  Sender: FDA-Public Use
  Company Number: DE-BAUSCH-BL-2014-002271

PATIENT
  Sex: Male
  Weight: 80 kg

DRUGS (5)
  1. MYDRUM AUGENTROPFEN [Suspect]
     Indication: DIAGNOSTIC PROCEDURE
     Dosage: ONCE
     Route: 047
  2. APROVEL [Concomitant]
     Indication: PRODUCT USED FOR UNKNOWN INDICATION
  3. ROEKAN PLUS [Concomitant]
     Indication: PRODUCT USED FOR UNKNOWN INDICATION
  4. ASPIRIN [Concomitant]
     Indication: PRODUCT USED FOR UNKNOWN INDICATION
  5. ALNA [Concomitant]
     Indication: PRODUCT USED FOR UNKNOWN INDICATION

REACTIONS (10)
  - Fall [Recovered/Resolved]
  - Syncope [Recovered/Resolved]
  - Cardiac disorder [Recovered/Resolved]
  - Oxygen saturation decreased [Recovered/Resolved]
  - Dyspnoea [Recovered/Resolved]
  - Nausea [Recovered/Resolved]
  - Vomiting [Recovered/Resolved]
  - Arthralgia [Recovered/Resolved]
  - Joint injury [Recovered/Resolved]
  - Feeling abnormal [Recovered/Resolved]
